FAERS Safety Report 8172514-2 (Version None)
Quarter: 2012Q1

REPORT INFORMATION
  Report Type: 
  Country: None (occurrence: None)
  Receive Date: 20120227
  Receipt Date: 20120227
  Transmission Date: 20120608
  Serious: Yes (Life-Threatening)
  Sender: FDA-Public Use
  Company Number: None

PATIENT
  Age: 23 Year
  Sex: Male
  Weight: 62.2 kg

DRUGS (5)
  1. CALCIUM CARBONATE [Concomitant]
  2. TYLENOL PM [Suspect]
     Indication: SLEEP DISORDER
     Dosage: 1000MG/DAY OD PO
     Route: 048
     Dates: end: 20100525
  3. TYLENOL W/ CODEINE [Suspect]
     Indication: TOOTH EXTRACTION
     Dosage: ABOUT 1200MG/DAY PO
     Route: 048
     Dates: start: 20100524, end: 20100525
  4. QAT/KHAT [Concomitant]
  5. ZOFRAN [Concomitant]

REACTIONS (6)
  - NAUSEA [None]
  - JAUNDICE [None]
  - ASPARTATE AMINOTRANSFERASE INCREASED [None]
  - ALANINE AMINOTRANSFERASE INCREASED [None]
  - HEPATOTOXICITY [None]
  - TOOTH EXTRACTION [None]
